FAERS Safety Report 21180211 (Version 3)
Quarter: 2024Q4

REPORT INFORMATION
  Report Type: Report from Study
  Country: US (occurrence: US)
  Receive Date: 20220806
  Receipt Date: 20241010
  Transmission Date: 20250114
  Serious: No
  Sender: NOVARTIS
  Company Number: US-NOVARTISTESTPH-NVSC2022US177683

PATIENT
  Sex: Female

DRUGS (2)
  1. COSENTYX [Suspect]
     Active Substance: SECUKINUMAB
     Indication: Psoriatic arthropathy
     Dosage: 150 MG, QW (ONCE A WEEK FOR 5 WEEKS THEN ONCE 4 WEEKS)
     Route: 058
  2. COSENTYX [Suspect]
     Active Substance: SECUKINUMAB
     Dosage: 300 MG, QMO
     Route: 058

REACTIONS (1)
  - Drug ineffective [Unknown]
